FAERS Safety Report 10024958 (Version 1)
Quarter: 2014Q1

REPORT INFORMATION
  Report Type: Spontaneous
  Country: JP (occurrence: None)
  Receive Date: 20140210
  Receipt Date: 20140210
  Transmission Date: 20141002
  Serious: Yes (Other)
  Sender: FDA-Public Use
  Company Number: ADR-2010-8943

PATIENT
  Age: 57 Year
  Sex: Male

DRUGS (3)
  1. GABALON INTRATHECAL (BACLOFEN INJECTION) [Suspect]
     Indication: MUSCLE SPASTICITY
     Dosage: SEE B5 MCG, DAILY, INTR
  2. RIVOTRIL [Concomitant]
  3. GABAPEN [Concomitant]

REACTIONS (3)
  - Depression [None]
  - Delirium [None]
  - Mental disorder [None]
